FAERS Safety Report 23875292 (Version 2)
Quarter: 2024Q2

REPORT INFORMATION
  Report Type: Spontaneous
  Country: US (occurrence: US)
  Receive Date: 20240520
  Receipt Date: 20240522
  Transmission Date: 20240717
  Serious: Yes (Life-Threatening, Hospitalization, Other)
  Sender: FDA-Public Use
  Company Number: US-MLMSERVICE-20240510-PI056368-00217-3

PATIENT
  Age: 62 Year
  Sex: Male

DRUGS (4)
  1. GLIPIZIDE [Suspect]
     Active Substance: GLIPIZIDE
     Indication: Type 2 diabetes mellitus
     Dosage: UNK
     Route: 048
  2. ACETAMINOPHEN [Suspect]
     Active Substance: ACETAMINOPHEN
     Dosage: UNK
     Route: 048
  3. EMPAGLIFLOZIN\METFORMIN HYDROCHLORIDE [Suspect]
     Active Substance: EMPAGLIFLOZIN\METFORMIN HYDROCHLORIDE
     Indication: Type 2 diabetes mellitus
     Dosage: UNK
     Route: 048
  4. METFORMIN [Suspect]
     Active Substance: METFORMIN HYDROCHLORIDE
     Indication: Type 2 diabetes mellitus
     Dosage: UNK
     Route: 048

REACTIONS (5)
  - Acute kidney injury [Recovered/Resolved]
  - Toxicity to various agents [Recovered/Resolved]
  - Lactic acidosis [Recovered/Resolved]
  - Metabolic acidosis [Recovered/Resolved]
  - Hypoglycaemia [Recovered/Resolved]
